FAERS Safety Report 23034751 (Version 1)
Quarter: 2023Q4

REPORT INFORMATION
  Report Type: Spontaneous
  Country: NZ (occurrence: NZ)
  Receive Date: 20231005
  Receipt Date: 20231005
  Transmission Date: 20240110
  Serious: Yes (Death, Hospitalization)
  Sender: FDA-Public Use
  Company Number: NZ-MYLANLABS-2023M1097510

PATIENT
  Sex: Male

DRUGS (15)
  1. CLOZARIL [Suspect]
     Active Substance: CLOZAPINE
     Indication: Schizophrenia
     Dosage: UNK
     Route: 048
     Dates: start: 19951129
  2. CLOZARIL [Suspect]
     Active Substance: CLOZAPINE
     Dosage: 100 MILLIGRAM (0.5 BREAKFAST, 0.5 BED TIME)
     Route: 048
     Dates: start: 20170213
  3. CLOZARIL [Suspect]
     Active Substance: CLOZAPINE
     Dosage: 50 MILLIGRAM, BID
     Route: 048
  4. LITHIUM [Concomitant]
     Active Substance: LITHIUM
     Indication: Bipolar disorder
     Dosage: QD (1 BEFORE BED TIME)
     Route: 048
     Dates: start: 20170803
  5. MELATONIN [Concomitant]
     Active Substance: MELATONIN
     Indication: Product used for unknown indication
     Dosage: UNK UNK, QD (STARTED IN HOSPITAL; 3 AT BED TIME)
     Route: 048
     Dates: start: 20211006
  6. DOXAZOSIN [Concomitant]
     Active Substance: DOXAZOSIN MESYLATE
     Indication: Micturition disorder
     Dosage: QD (1 TEA TIME)
     Route: 065
     Dates: start: 20170213
  7. VALPROATE [Concomitant]
     Active Substance: VALPROIC ACID
     Indication: Affective disorder
     Dosage: BID (1 BREAKFAST, 3 TEA TIME)
     Route: 048
     Dates: start: 20170213
  8. RISPERIDONE [Concomitant]
     Active Substance: RISPERIDONE
     Indication: Product used for unknown indication
     Dosage: QD (REASON STARTED: DOSE REDUCTION) (1 BED TIME)
     Route: 048
     Dates: start: 20190418
  9. ATORVASTATIN [Concomitant]
     Active Substance: ATORVASTATIN
     Indication: Lipids
     Dosage: QD (1 BEFORE BED TIME)
     Route: 048
     Dates: start: 20220421
  10. ATORVASTATIN [Concomitant]
     Active Substance: ATORVASTATIN
     Indication: Disease risk factor
  11. ACETAMINOPHEN [Concomitant]
     Active Substance: ACETAMINOPHEN
     Indication: Pain in extremity
     Dosage: QID (2 AT BREAKFAST, 2 AT LUNCH, 2 AT TEA TIME, 2 AT BED TIME)
     Route: 048
     Dates: start: 20230223
  12. DOCUSATE SODIUM\SENNOSIDE B [Concomitant]
     Active Substance: DOCUSATE SODIUM\SENNOSIDE B
     Indication: Constipation
     Dosage: BID (2 BEFORE BREAKFAST, 2 AT TEA TIME)
     Route: 048
     Dates: start: 20211006
  13. CHOLECALCIFEROL [Concomitant]
     Active Substance: CHOLECALCIFEROL
     Indication: Vitamin D
     Dosage: QD (1 BREAKFAST)
     Route: 048
     Dates: start: 20170217
  14. POLYETHYLENE GLYCOL 3350\POTASSIUM CHLORIDE\SODIUM BICARBONATE\SODIUM [Concomitant]
     Active Substance: POLYETHYLENE GLYCOL 3350\POTASSIUM CHLORIDE\SODIUM BICARBONATE\SODIUM CHLORIDE
     Indication: Drug therapy
     Dosage: BID (DOSE INCREASE; 1 WITH BREAKFAST AND 1 BEFORE BED)
     Route: 048
     Dates: start: 20181118
  15. HYDROXOCOBALAMIN [Concomitant]
     Active Substance: HYDROXOCOBALAMIN
     Indication: Vitamin B12
     Dosage: UNK, Q3MONTHS (1 AT BREAKFAST)
     Route: 030
     Dates: start: 20170213

REACTIONS (3)
  - Acute respiratory failure [Fatal]
  - Chronic obstructive pulmonary disease [Fatal]
  - Pneumonia [Fatal]
